FAERS Safety Report 20812054 (Version 1)
Quarter: 2022Q2

REPORT INFORMATION
  Report Type: Spontaneous
  Country: US (occurrence: US)
  Receive Date: 20220511
  Receipt Date: 20220511
  Transmission Date: 20220720
  Serious: No
  Sender: FDA-Public Use
  Company Number: US-BRISTOL-MYERS SQUIBB COMPANY-2022-026337

PATIENT
  Sex: Female

DRUGS (1)
  1. IDHIFA [Suspect]
     Active Substance: ENASIDENIB MESYLATE
     Indication: Acute myeloid leukaemia
     Route: 048
     Dates: start: 20220328

REACTIONS (10)
  - Abnormal faeces [Unknown]
  - Decreased appetite [Unknown]
  - Nausea [Unknown]
  - Asthenia [Unknown]
  - Cough [Unknown]
  - Insomnia [Unknown]
  - Body temperature fluctuation [Unknown]
  - Suspected COVID-19 [Unknown]
  - Dyspnoea [Unknown]
  - Joint swelling [Unknown]
